FAERS Safety Report 8233578-0 (Version None)
Quarter: 2012Q1

REPORT INFORMATION
  Report Type: 
  Country: None (occurrence: None)
  Receive Date: 20120326
  Receipt Date: 20120314
  Transmission Date: 20120608
  Serious: Yes (Other)
  Sender: FDA-Public Use
  Company Number: PHEH2011US07284

PATIENT
  Sex: Male

DRUGS (2)
  1. EXJADE [Suspect]
     Indication: IRON OVERLOAD
     Dosage: 2000 MG, QD
     Route: 048
  2. REVLIMID [Concomitant]

REACTIONS (3)
  - SINUSITIS [None]
  - HYPOACUSIS [None]
  - WHITE BLOOD CELL COUNT DECREASED [None]
